FAERS Safety Report 13589273 (Version 1)
Quarter: 2017Q2

REPORT INFORMATION
  Report Type: Spontaneous
  Country: US (occurrence: US)
  Receive Date: 20170526
  Receipt Date: 20170526
  Transmission Date: 20170830
  Serious: No
  Sender: FDA-Public Use
  Company Number: None

PATIENT
  Age: 49 Year
  Sex: Female

DRUGS (1)
  1. IBRANCE [Suspect]
     Active Substance: PALBOCICLIB
     Indication: BREAST CANCER FEMALE
     Dosage: 100MG DAILY 21 DAYS ON, 7 DAYS OFF ORAL
     Route: 048
     Dates: start: 20170211

REACTIONS (2)
  - Myalgia [None]
  - Weight increased [None]

NARRATIVE: CASE EVENT DATE: 20170401
